FAERS Safety Report 16490125 (Version 1)
Quarter: 2019Q3

REPORT INFORMATION
  Report Type: Spontaneous
  Country: US (occurrence: US)
  Receive Date: 20190627
  Receipt Date: 20190627
  Transmission Date: 20191004
  Serious: No
  Sender: FDA-Public Use
  Company Number: None

PATIENT
  Age: 45 Year
  Sex: Female
  Weight: 99 kg

DRUGS (4)
  1. PENSAID GEL TOPICAL [Concomitant]
  2. ALEVE [Concomitant]
     Active Substance: NAPROXEN SODIUM
  3. FLONASE [Concomitant]
     Active Substance: FLUTICASONE PROPIONATE
  4. MISOPROSTOL. [Suspect]
     Active Substance: MISOPROSTOL
     Indication: HYSTEROSCOPY
     Dosage: ?          QUANTITY:3 TABLET(S);OTHER FREQUENCY:1X;?
     Route: 067
     Dates: start: 20190429, end: 20190429

REACTIONS (3)
  - Loss of consciousness [None]
  - Pain [None]
  - Nausea [None]

NARRATIVE: CASE EVENT DATE: 20190429
